FAERS Safety Report 7624368-8 (Version None)
Quarter: 2011Q3

REPORT INFORMATION
  Report Type: 
  Country: None (occurrence: None)
  Receive Date: 20110720
  Receipt Date: 20110711
  Transmission Date: 20111222
  Serious: Yes (Other)
  Sender: FDA-Public Use
  Company Number: GB-EISAI INC-E2020-09428-SPO-GB

PATIENT
  Age: 78 Year
  Sex: Male

DRUGS (2)
  1. ARICEPT [Suspect]
     Route: 048
     Dates: start: 20091210, end: 20100916
  2. LISINOPRIL [Concomitant]
     Indication: HYPERTENSION
     Route: 048

REACTIONS (1)
  - NEUTROPENIA [None]
